FAERS Safety Report 4359131-7 (Version None)
Quarter: 2004Q2

REPORT INFORMATION
  Report Type: 
  Country: None (occurrence: None)
  Receive Date: 20040512
  Receipt Date: 20040429
  Transmission Date: 20050107
  Serious: Yes (Hospitalization)
  Sender: FDA-Public Use
  Company Number: 2004AP02314

PATIENT
  Age: 65 Year
  Sex: Female

DRUGS (2)
  1. LOSEC [Suspect]
     Indication: STOMACH DISCOMFORT
     Dosage: 20 MG DAILY PO
     Route: 048
     Dates: start: 20040101, end: 20040422
  2. ACCUPRIL [Concomitant]

REACTIONS (4)
  - ASTHENIA [None]
  - CHOLELITHIASIS [None]
  - CONSTIPATION [None]
  - FATIGUE [None]
